FAERS Safety Report 9871189 (Version 2)
Quarter: 2014Q2

REPORT INFORMATION
  Report Type: Spontaneous
  Country: US (occurrence: US)
  Receive Date: 20140205
  Receipt Date: 20140403
  Transmission Date: 20141212
  Serious: Yes (Other)
  Sender: FDA-Public Use
  Company Number: US-SA-2014SA013361

PATIENT
  Age: 93 Year
  Sex: Male
  Weight: 72.57 kg

DRUGS (3)
  1. LANTUS SOLOSTAR [Suspect]
     Indication: TYPE 2 DIABETES MELLITUS
     Dosage: DOSE: 26-28 UNITS ONCE A DAY
     Route: 058
     Dates: start: 20131201
  2. LANTUS SOLOSTAR [Suspect]
     Indication: TYPE 2 DIABETES MELLITUS
     Dosage: DOSE: 26-28 UNITS ONCE A DAY
     Route: 058
     Dates: start: 2009
  3. SOLOSTAR [Concomitant]
     Indication: TYPE 2 DIABETES MELLITUS
     Dates: start: 20131201

REACTIONS (3)
  - Dementia [Unknown]
  - Abasia [Unknown]
  - Speech disorder [Unknown]
